FAERS Safety Report 5443168-0 (Version None)
Quarter: 2007Q3

REPORT INFORMATION
  Report Type: 
  Country: None (occurrence: None)
  Receive Date: 20070905
  Receipt Date: 20070822
  Transmission Date: 20080115
  Serious: Yes (Hospitalization)
  Sender: FDA-Public Use
  Company Number: US-KINGPHARMUSA00001-K200701073

PATIENT

DRUGS (3)
  1. ALTACE [Suspect]
     Dosage: 10 MG, QD
     Route: 048
  2. PLAVIX [Suspect]
     Route: 048
  3. LIPITOR [Concomitant]
     Dosage: 40 MG, QD
     Route: 048

REACTIONS (5)
  - ATRIAL FIBRILLATION [None]
  - BRONCHITIS [None]
  - COUGH [None]
  - MYOCARDIAL INFARCTION [None]
  - UPPER RESPIRATORY TRACT INFECTION [None]
